FAERS Safety Report 23808350 (Version 5)
Quarter: 2025Q2

REPORT INFORMATION
  Report Type: Spontaneous
  Country: CA (occurrence: CA)
  Receive Date: 20240502
  Receipt Date: 20250519
  Transmission Date: 20250716
  Serious: Yes (Hospitalization, Other)
  Sender: MYLAN
  Company Number: CA-MYLANLABS-2024M1039051

PATIENT
  Age: 87 Year
  Sex: Male

DRUGS (32)
  1. VALPROIC ACID [Suspect]
     Active Substance: VALPROIC ACID
     Indication: Partial seizures
     Dosage: 1000 MILLIGRAM, QD
     Route: 065
  2. VALPROIC ACID [Suspect]
     Active Substance: VALPROIC ACID
     Dosage: 1000 MILLIGRAM, QD
  3. VALPROIC ACID [Suspect]
     Active Substance: VALPROIC ACID
     Dosage: 1000 MILLIGRAM, QD
  4. VALPROIC ACID [Suspect]
     Active Substance: VALPROIC ACID
     Dosage: 1000 MILLIGRAM, QD
     Route: 065
  5. VALPROIC ACID [Suspect]
     Active Substance: VALPROIC ACID
  6. VALPROIC ACID [Suspect]
     Active Substance: VALPROIC ACID
  7. VALPROIC ACID [Suspect]
     Active Substance: VALPROIC ACID
     Route: 065
  8. VALPROIC ACID [Suspect]
     Active Substance: VALPROIC ACID
     Route: 065
  9. VALPROIC ACID [Suspect]
     Active Substance: VALPROIC ACID
     Route: 065
  10. VALPROIC ACID [Suspect]
     Active Substance: VALPROIC ACID
  11. VALPROIC ACID [Suspect]
     Active Substance: VALPROIC ACID
  12. VALPROIC ACID [Suspect]
     Active Substance: VALPROIC ACID
     Route: 065
  13. CLOBAZAM [Suspect]
     Active Substance: CLOBAZAM
     Indication: Partial seizures
     Dosage: 30 MILLIGRAM, QD
     Route: 065
  14. CLOBAZAM [Suspect]
     Active Substance: CLOBAZAM
     Dosage: 30 MILLIGRAM, QD
  15. CLOBAZAM [Suspect]
     Active Substance: CLOBAZAM
     Dosage: 30 MILLIGRAM, QD
  16. CLOBAZAM [Suspect]
     Active Substance: CLOBAZAM
     Dosage: 30 MILLIGRAM, QD
     Route: 065
  17. CLOBAZAM [Suspect]
     Active Substance: CLOBAZAM
     Route: 065
  18. CLOBAZAM [Suspect]
     Active Substance: CLOBAZAM
  19. CLOBAZAM [Suspect]
     Active Substance: CLOBAZAM
  20. CLOBAZAM [Suspect]
     Active Substance: CLOBAZAM
     Route: 065
  21. LEVETIRACETAM [Suspect]
     Active Substance: LEVETIRACETAM
     Indication: Partial seizures
     Dosage: 750 MILLIGRAM, BID (2 EVERY 1 DAYS)
     Route: 065
  22. LEVETIRACETAM [Suspect]
     Active Substance: LEVETIRACETAM
     Dosage: 750 MILLIGRAM, BID (2 EVERY 1 DAYS)
  23. LEVETIRACETAM [Suspect]
     Active Substance: LEVETIRACETAM
     Dosage: 750 MILLIGRAM, BID (2 EVERY 1 DAYS)
  24. LEVETIRACETAM [Suspect]
     Active Substance: LEVETIRACETAM
     Dosage: 750 MILLIGRAM, BID (2 EVERY 1 DAYS)
     Route: 065
  25. LEVETIRACETAM [Suspect]
     Active Substance: LEVETIRACETAM
     Dosage: 3000 MILLIGRAM, QD
  26. LEVETIRACETAM [Suspect]
     Active Substance: LEVETIRACETAM
     Dosage: 3000 MILLIGRAM, QD
  27. LEVETIRACETAM [Suspect]
     Active Substance: LEVETIRACETAM
     Dosage: 3000 MILLIGRAM, QD
     Route: 065
  28. LEVETIRACETAM [Suspect]
     Active Substance: LEVETIRACETAM
     Dosage: 3000 MILLIGRAM, QD
     Route: 065
  29. LEVETIRACETAM [Suspect]
     Active Substance: LEVETIRACETAM
     Route: 065
  30. LEVETIRACETAM [Suspect]
     Active Substance: LEVETIRACETAM
  31. LEVETIRACETAM [Suspect]
     Active Substance: LEVETIRACETAM
  32. LEVETIRACETAM [Suspect]
     Active Substance: LEVETIRACETAM
     Route: 065

REACTIONS (5)
  - Delirium [Recovering/Resolving]
  - Fall [Recovering/Resolving]
  - Gait disturbance [Recovering/Resolving]
  - Multiple-drug resistance [Recovering/Resolving]
  - Moaning [Unknown]
